FAERS Safety Report 8245918-7 (Version None)
Quarter: 2012Q1

REPORT INFORMATION
  Report Type: 
  Country: None (occurrence: None)
  Receive Date: 20120327
  Receipt Date: 20120312
  Transmission Date: 20120608
  Serious: No
  Sender: FDA-Public Use
  Company Number: SPI201200035

PATIENT
  Age: 27 Year
  Weight: 73.7 kg

DRUGS (2)
  1. AMITIZA [Suspect]
     Indication: IRRITABLE BOWEL SYNDROME
     Dosage: 8 MCG, BID, ORAL
     Route: 048
     Dates: start: 20120220
  2. BENTYL [Suspect]
     Dosage: 20 MG, BID
     Dates: start: 20120222, end: 20120222

REACTIONS (4)
  - CHEST DISCOMFORT [None]
  - ANXIETY [None]
  - CONDITION AGGRAVATED [None]
  - URTICARIA [None]
